FAERS Safety Report 5945588-4 (Version None)
Quarter: 2008Q4

REPORT INFORMATION
  Report Type: 
  Country: None (occurrence: None)
  Receive Date: 20081107
  Receipt Date: 20081029
  Transmission Date: 20090506
  Serious: Yes (Other)
  Sender: FDA-Public Use
  Company Number: JP-PFIZER INC-2008091073

PATIENT

DRUGS (3)
  1. SOLANAX [Suspect]
     Route: 048
  2. MYSLEE [Concomitant]
     Route: 048
  3. PAXIL [Concomitant]
     Route: 048

REACTIONS (1)
  - ROAD TRAFFIC ACCIDENT [None]
